FAERS Safety Report 8806088 (Version 2)
Quarter: 2013Q2

REPORT INFORMATION
  Report Type: Spontaneous
  Country: DE (occurrence: DE)
  Receive Date: 20120925
  Receipt Date: 20130430
  Transmission Date: 20140414
  Serious: Yes (Hospitalization)
  Sender: FDA-Public Use
  Company Number: DE-BRISTOL-MYERS SQUIBB COMPANY-16970360

PATIENT
  Age: 82 Year
  Sex: Female
  Weight: 67 kg

DRUGS (8)
  1. METFORMIN HCL [Suspect]
     Indication: TYPE 2 DIABETES MELLITUS
     Dosage: 500 MG: 2-2-1
     Route: 048
     Dates: start: 20100521
  2. JANUVIA [Concomitant]
     Dosage: STRENGTH: 100MG
     Dates: start: 20100526
  3. ACETYLSALICYLIC ACID [Concomitant]
     Dosage: 1 DF = 100 UNS
     Dates: start: 20100512
  4. CARVEDILOL [Concomitant]
     Dosage: STRENGTH: 6.25MG
     Route: 048
     Dates: start: 20100512
  5. AMLODIPINE [Concomitant]
     Dosage: STRENGTH:10MG,1.5DF
     Route: 048
     Dates: start: 20100512
  6. TORASEMIDE [Concomitant]
     Dosage: STRENGTH:10MG,1.5DF
     Route: 048
     Dates: start: 20100512
  7. RAMIPRIL [Concomitant]
     Dates: start: 20100512
  8. CLONIDINE [Concomitant]
     Dosage: STRENGTH: 75MG
     Route: 048

REACTIONS (2)
  - Renal failure acute [Recovered/Resolved]
  - Lactic acidosis [Recovered/Resolved]
